FAERS Safety Report 6986629-5 (Version None)
Quarter: 2010Q3

REPORT INFORMATION
  Report Type: 
  Country: None (occurrence: None)
  Receive Date: 20100915
  Receipt Date: 20090717
  Transmission Date: 20110219
  Serious: No
  Sender: FDA-Public Use
  Company Number: US-WYE-H10206909

PATIENT
  Sex: Female

DRUGS (5)
  1. PRISTIQ [Suspect]
     Indication: MENOPAUSE
     Route: 048
     Dates: start: 20090617
  2. WELLBUTRIN [Concomitant]
  3. SINGULAIR [Concomitant]
  4. CRESTOR [Concomitant]
  5. NEXIUM [Concomitant]

REACTIONS (1)
  - INCREASED APPETITE [None]
